FAERS Safety Report 12567176 (Version 1)
Quarter: 2016Q3

REPORT INFORMATION
  Report Type: Report from Study
  Country: US (occurrence: US)
  Receive Date: 20160718
  Receipt Date: 20160718
  Transmission Date: 20161109
  Serious: Yes (Hospitalization)
  Sender: FDA-Public Use
  Company Number: US-NAPPMUNDI-USA-2016-0132196

PATIENT
  Age: 78 Year
  Sex: Female

DRUGS (2)
  1. OXYCONTIN [Suspect]
     Active Substance: OXYCODONE HYDROCHLORIDE
     Indication: RADIATION ASSOCIATED PAIN
     Dosage: 40 MG, Q8H
     Route: 048
     Dates: start: 2001
  2. OXYCONTIN [Suspect]
     Active Substance: OXYCODONE HYDROCHLORIDE
     Indication: CANCER PAIN
     Dosage: 40 MG, BID
     Route: 048

REACTIONS (6)
  - Malaise [Unknown]
  - Lymphoedema [Unknown]
  - Thrombosis [Unknown]
  - Hospitalisation [Unknown]
  - Inadequate analgesia [Unknown]
  - Pain [Unknown]

NARRATIVE: CASE EVENT DATE: 2015
